FAERS Safety Report 15593757 (Version 1)
Quarter: 2018Q4

REPORT INFORMATION
  Report Type: Spontaneous
  Country: US (occurrence: US)
  Receive Date: 20181106
  Receipt Date: 20181106
  Transmission Date: 20190205
  Serious: No
  Sender: FDA-Public Use
  Company Number: US-PFIZER INC-2018449110

PATIENT
  Age: 50 Year
  Sex: Female

DRUGS (1)
  1. PREMPRO [Suspect]
     Active Substance: ESTROGENS, CONJUGATED\MEDROXYPROGESTERONE ACETATE
     Dosage: UNK, [ESTROGENS CONJUGATED: 0.625 MG]/[ MEDROXYPROGESTERONE ACETATE: 2.5 MG]

REACTIONS (4)
  - Dizziness [Unknown]
  - Vaginal haemorrhage [Unknown]
  - Headache [Unknown]
  - Malaise [Unknown]
